FAERS Safety Report 26154590 (Version 1)
Quarter: 2025Q4

REPORT INFORMATION
  Report Type: Spontaneous
  Country: AU (occurrence: AU)
  Receive Date: 20251215
  Receipt Date: 20251215
  Transmission Date: 20260118
  Serious: Yes (Other)
  Sender: ACCORD
  Company Number: None

PATIENT
  Sex: Female

DRUGS (2)
  1. METHOTREXATE [Suspect]
     Active Substance: METHOTREXATE
     Indication: Product used for unknown indication
  2. ETANERCEPT [Suspect]
     Active Substance: ETANERCEPT
     Indication: Product used for unknown indication

REACTIONS (8)
  - Meningitis [Unknown]
  - Bone erosion [Unknown]
  - Brain fog [Unknown]
  - Headache [Unknown]
  - Malaise [Unknown]
  - Memory impairment [Unknown]
  - Mouth ulceration [Unknown]
  - Sinusitis fungal [Unknown]
